FAERS Safety Report 23860750 (Version 1)
Quarter: 2024Q2

REPORT INFORMATION
  Report Type: Spontaneous
  Country: US (occurrence: US)
  Receive Date: 20240516
  Receipt Date: 20240516
  Transmission Date: 20240716
  Serious: Yes (Death, Hospitalization)
  Sender: FDA-Public Use
  Company Number: US-STRIDES ARCOLAB LIMITED-2024SP005640

PATIENT
  Age: 77 Year
  Sex: Female

DRUGS (2)
  1. PREDNISOLONE [Suspect]
     Active Substance: PREDNISOLONE
     Indication: Rheumatoid arthritis
     Dosage: UNK
     Route: 065
  2. METHOTREXATE [Suspect]
     Active Substance: METHOTREXATE
     Indication: Rheumatoid arthritis
     Dosage: UNK
     Route: 065

REACTIONS (8)
  - Respiratory failure [Fatal]
  - Pneumonia viral [Fatal]
  - Pulmonary mass [Recovered/Resolved]
  - Bronchiectasis [Recovered/Resolved]
  - Device related infection [Recovered/Resolved]
  - Arthritis infective [Recovered/Resolved]
  - Disseminated mycobacterium avium complex infection [Recovered/Resolved]
  - Osteomyelitis [Recovered/Resolved]
